FAERS Safety Report 7655585-9 (Version None)
Quarter: 2011Q3

REPORT INFORMATION
  Report Type: 
  Country: None (occurrence: None)
  Receive Date: 20110804
  Receipt Date: 20110801
  Transmission Date: 20111222
  Serious: Yes (Death, Hospitalization, Other)
  Sender: FDA-Public Use
  Company Number: PHHY2011ZA66945

PATIENT
  Sex: Male

DRUGS (1)
  1. GLEEVEC [Suspect]
     Indication: RENAL FAILURE CHRONIC
     Dosage: 400 MG, UNK
     Route: 048

REACTIONS (2)
  - DEATH [None]
  - LOSS OF CONSCIOUSNESS [None]
